FAERS Safety Report 14145196 (Version 1)
Quarter: 2017Q4

REPORT INFORMATION
  Report Type: Spontaneous
  Country: DE (occurrence: DE)
  Receive Date: 20171031
  Receipt Date: 20171031
  Transmission Date: 20180321
  Serious: Yes (Hospitalization, Other)
  Sender: FDA-Public Use
  Company Number: DE-FRESENIUS KABI-FK201709131

PATIENT
  Age: 22 Year
  Sex: Female

DRUGS (1)
  1. PROPOFOL 1% FRESENIUS [Suspect]
     Active Substance: PROPOFOL
     Indication: CENTRAL VENOUS CATHETERISATION
     Route: 042
     Dates: start: 20171005

REACTIONS (11)
  - Blood creatine phosphokinase increased [Recovering/Resolving]
  - Rash macular [Recovering/Resolving]
  - Hot flush [Recovering/Resolving]
  - Oedema peripheral [Recovering/Resolving]
  - Muscular weakness [Recovering/Resolving]
  - Rhabdomyolysis [Recovering/Resolving]
  - Gait disturbance [Recovering/Resolving]
  - Pain in extremity [Recovering/Resolving]
  - Flushing [Recovering/Resolving]
  - Oliguria [Recovering/Resolving]
  - Pruritus [Recovering/Resolving]

NARRATIVE: CASE EVENT DATE: 20171005
